FAERS Safety Report 18269401 (Version 1)
Quarter: 2020Q3

REPORT INFORMATION
  Report Type: Spontaneous
  Country: US (occurrence: US)
  Receive Date: 20200915
  Receipt Date: 20200915
  Transmission Date: 20201103
  Serious: Yes (Other)
  Sender: FDA-Public Use
  Company Number: US-ELI_LILLY_AND_COMPANY-US202009005342

PATIENT
  Age: 39 Year
  Sex: Female

DRUGS (1)
  1. REYVOW [Suspect]
     Active Substance: LASMIDITAN
     Indication: MIGRAINE
     Dosage: 100 MG, UNKNOWN
     Route: 048
     Dates: start: 20200903

REACTIONS (18)
  - Photophobia [Unknown]
  - Tachyphrenia [Unknown]
  - Lethargy [Unknown]
  - Nausea [Unknown]
  - Memory impairment [Unknown]
  - Diarrhoea [Unknown]
  - Vomiting [Unknown]
  - Muscle twitching [Unknown]
  - Conversion disorder [Unknown]
  - Hypokinesia [Unknown]
  - Agitation [Unknown]
  - Dizziness [Unknown]
  - Serotonin syndrome [Unknown]
  - Disturbance in attention [Unknown]
  - Speech disorder [Unknown]
  - Body temperature increased [Unknown]
  - Muscle tightness [Unknown]
  - Gait disturbance [Unknown]

NARRATIVE: CASE EVENT DATE: 20200903
